FAERS Safety Report 4946239-8 (Version None)
Quarter: 2006Q1

REPORT INFORMATION
  Report Type: 
  Country: None (occurrence: None)
  Receive Date: 20060113
  Receipt Date: 20051014
  Transmission Date: 20060701
  Serious: No
  Sender: FDA-Public Use
  Company Number: 2005SP003556

PATIENT
  Age: 34 Year
  Sex: Female
  Weight: 87.9978 kg

DRUGS (9)
  1. LUNESTA [Suspect]
     Indication: INSOMNIA
     Dosage: 2 MG; HS; ORAL
     Route: 048
     Dates: start: 20051009, end: 20051107
  2. SALICYLIC ACID [Concomitant]
  3. HYZAAR [Concomitant]
  4. ATORVASTATIN CALCIUM [Concomitant]
  5. AVANDAMENT [Concomitant]
  6. PROPOXYPHENE [Concomitant]
  7. WELLBUTRIN [Concomitant]
  8. ZELNORM [Concomitant]
  9. ZYRTEC [Concomitant]

REACTIONS (3)
  - DRUG INEFFECTIVE [None]
  - DYSGEUSIA [None]
  - INITIAL INSOMNIA [None]
